FAERS Safety Report 8446144-9 (Version None)
Quarter: 2012Q2

REPORT INFORMATION
  Report Type: 
  Country: None (occurrence: None)
  Receive Date: 20120618
  Receipt Date: 20120613
  Transmission Date: 20120825
  Serious: Yes (Life-Threatening, Other)
  Sender: FDA-Public Use
  Company Number: FR-PFIZER INC-2012112864

PATIENT
  Age: 76 Year
  Sex: Female
  Weight: 58 kg

DRUGS (8)
  1. ISKEDYL [Concomitant]
     Indication: VERTIGO
     Dosage: UNK, 2X/DAY
     Route: 048
  2. CRESTOR [Concomitant]
     Indication: HYPERCHOLESTEROLAEMIA
     Dosage: 5 MG, 1X/DAY
     Route: 048
  3. IMOVANE [Concomitant]
     Indication: SLEEP DISORDER
     Dosage: 7.5, 1X/DAY
     Route: 048
  4. LYRICA [Suspect]
     Indication: NEURALGIA
     Dosage: 25 MG, 1X/DAY IN EVENING
     Dates: start: 20120426, end: 20120506
  5. STABLON [Concomitant]
     Indication: DEPRESSION
     Dosage: 12.5, 3X/DAY
     Route: 048
  6. ACETAMINOPHEN [Concomitant]
     Dosage: UNK
  7. IRBESARTAN [Concomitant]
     Indication: HYPERTENSION
     Dosage: 150, 1X/DAY
     Route: 048
  8. GAVISCON [Concomitant]
     Dosage: UNK

REACTIONS (9)
  - PERIORBITAL HAEMATOMA [None]
  - HEAD INJURY [None]
  - VERTIGO [None]
  - LOSS OF CONSCIOUSNESS [None]
  - OEDEMA [None]
  - URTICARIA [None]
  - FALL [None]
  - PRURITUS [None]
  - ACNE [None]
